FAERS Safety Report 15561237 (Version 1)
Quarter: 2018Q4

REPORT INFORMATION
  Report Type: Spontaneous
  Country: US (occurrence: US)
  Receive Date: 20181023
  Receipt Date: 20181023
  Transmission Date: 20190205
  Serious: Yes (Other)
  Sender: FDA-Public Use
  Company Number: None

PATIENT
  Sex: Female

DRUGS (1)
  1. GLATIRAMER ACETATE (12X1ML) 40MG/ML MYLAN [Suspect]
     Active Substance: GLATIRAMER ACETATE
     Indication: SPINAL CORD DISORDER
     Route: 058
     Dates: start: 20180927, end: 20181010

REACTIONS (4)
  - Hyperhidrosis [None]
  - Headache [None]
  - Heart rate increased [None]
  - Blood pressure increased [None]
